FAERS Safety Report 15545331 (Version 1)
Quarter: 2018Q4

REPORT INFORMATION
  Report Type: Spontaneous
  Country: JP (occurrence: US)
  Receive Date: 20181024
  Receipt Date: 20181024
  Transmission Date: 20190205
  Serious: Yes (Hospitalization, Other)
  Sender: FDA-Public Use
  Company Number: JP-PFIZER INC-2018409330

PATIENT
  Age: 5 Decade
  Sex: Female

DRUGS (1)
  1. CELECOX [Suspect]
     Active Substance: CELECOXIB
     Indication: CERVICOBRACHIAL SYNDROME
     Dosage: 200 MG, DAILY
     Route: 048

REACTIONS (1)
  - Stevens-Johnson syndrome [Recovered/Resolved]
